FAERS Safety Report 19415566 (Version 2)
Quarter: 2021Q2

REPORT INFORMATION
  Report Type: Spontaneous
  Country: US (occurrence: US)
  Receive Date: 20210615
  Receipt Date: 20210615
  Transmission Date: 20210717
  Serious: Yes (Disabling, Other)
  Sender: FDA-Public Use
  Company Number: US-SA-2021SA196685

PATIENT
  Age: 77 Year
  Sex: Male

DRUGS (2)
  1. FEXOFENADINE HYDROCHLORIDE. [Suspect]
     Active Substance: FEXOFENADINE HYDROCHLORIDE
     Dosage: 180 MG, QMN
  2. XYZAL ALLERGY 24HR [Suspect]
     Active Substance: LEVOCETIRIZINE DIHYDROCHLORIDE
     Dosage: 5 MG, HS(DRUG TREATMENT DURATION: ABOUT 2 WEEKS)
     Dates: end: 20210609

REACTIONS (2)
  - Catheter site related reaction [Not Recovered/Not Resolved]
  - Urinary retention [Not Recovered/Not Resolved]
